FAERS Safety Report 9364420 (Version 1)
Quarter: 2013Q2

REPORT INFORMATION
  Report Type: Spontaneous
  Country: CH (occurrence: CH)
  Receive Date: 20130624
  Receipt Date: 20130624
  Transmission Date: 20140414
  Serious: Yes (Other)
  Sender: FDA-Public Use
  Company Number: CH-TEVA-412215ISR

PATIENT
  Sex: Female
  Weight: 58 kg

DRUGS (6)
  1. ONCOVIN [Suspect]
     Indication: B-CELL LYMPHOMA
     Dosage: FIRST CYCLE: 19-NOV-2009, SECOND CYCLE: 09-DEC-2009, THIRD CYCLE: 23-DEC-2009
     Route: 040
     Dates: start: 20091119, end: 20091223
  2. MABTHERA [Suspect]
     Indication: B-CELL LYMPHOMA
     Dosage: FIRST CYCLE: 19-NOV-2009, SECOND CYCLE: 09-DEC-2009, THIRD CYCLE: 23-DEC-2009
     Route: 041
     Dates: start: 20091119, end: 20091223
  3. ENDOXAN [Suspect]
     Indication: B-CELL LYMPHOMA
     Dosage: FIRST CYCLE: 19-NOV-2009, SECOND CYCLE: 09-DEC-2009, THIRD CYCLE: 23-DEC-2009
     Route: 041
     Dates: start: 20091119, end: 20091223
  4. NEULASTA [Suspect]
     Dosage: FIRST CYCLE: 20-NOV-2009, SECOND CYCLE: 10-DEC-2009, THIRD CYCLE: 24-DEC-2009
     Route: 058
     Dates: start: 20091120, end: 20091224
  5. ADRIBLASTIN [Concomitant]
     Indication: B-CELL LYMPHOMA
     Dosage: FIRST CYCLE: 19-NOV-2009, SECOND CYCLE: 09-DEC-2009, THIRD CYCLE: 23-DEC-2009
     Route: 040
     Dates: start: 20091119, end: 20091223
  6. PREDNISONE [Concomitant]
     Route: 048

REACTIONS (2)
  - Polyneuropathy [Not Recovered/Not Resolved]
  - Pain in extremity [Not Recovered/Not Resolved]
